FAERS Safety Report 8575421-6 (Version None)
Quarter: 2012Q3

REPORT INFORMATION
  Report Type: 
  Country: None (occurrence: None)
  Receive Date: 20120807
  Receipt Date: 20120803
  Transmission Date: 20120928
  Serious: Yes (Life-Threatening, Hospitalization)
  Sender: FDA-Public Use
  Company Number: FR-CELGENEUS-056-22393-12070895

PATIENT
  Sex: Male
  Weight: 67 kg

DRUGS (6)
  1. ISTODAX [Suspect]
     Route: 065
  2. ADRIAMYCIN PFS [Suspect]
     Indication: LYMPHOMA
     Route: 065
     Dates: start: 20120705, end: 20120705
  3. ISTODAX [Suspect]
     Indication: LYMPHOMA
     Dosage: 21.6 MILLIGRAM
     Route: 041
     Dates: start: 20120705, end: 20120705
  4. ONCOVIN [Suspect]
     Indication: LYMPHOMA
     Route: 065
     Dates: start: 20120705, end: 20120705
  5. PREDNISONE [Suspect]
     Indication: LYMPHOMA
     Route: 065
     Dates: start: 20120705, end: 20120705
  6. CYCLOPHOSPHAMIDE [Suspect]
     Indication: LYMPHOMA
     Route: 065
     Dates: start: 20120705, end: 20120705

REACTIONS (1)
  - MYOCARDIAL INFARCTION [None]
